FAERS Safety Report 6729085-4 (Version None)
Quarter: 2010Q2

REPORT INFORMATION
  Report Type: 
  Country: None (occurrence: None)
  Receive Date: 20100517
  Receipt Date: 20100325
  Transmission Date: 20101027
  Serious: No
  Sender: FDA-Public Use
  Company Number: US-ABBOTT-10P-163-0634650-00

PATIENT
  Sex: Female
  Weight: 64.014 kg

DRUGS (13)
  1. SIMCOR [Suspect]
     Indication: BLOOD CHOLESTEROL INCREASED
     Route: 048
     Dates: start: 20091201
  2. PROTONIX [Concomitant]
     Indication: DRUG USE FOR UNKNOWN INDICATION
  3. AMBIEN [Concomitant]
     Indication: DRUG USE FOR UNKNOWN INDICATION
  4. LYRICA [Concomitant]
     Indication: DIABETIC NEUROPATHY
  5. LYDIA PINKUM [Concomitant]
     Indication: DRUG USE FOR UNKNOWN INDICATION
  6. TEKTURNA [Concomitant]
     Indication: DRUG USE FOR UNKNOWN INDICATION
  7. DIOVAN [Concomitant]
     Indication: DRUG USE FOR UNKNOWN INDICATION
  8. METFORMIN HYDROCHLORIDE [Concomitant]
     Indication: DRUG USE FOR UNKNOWN INDICATION
  9. INTEGRAF [Concomitant]
     Indication: DRUG USE FOR UNKNOWN INDICATION
  10. FISH OIL [Concomitant]
     Indication: DRUG USE FOR UNKNOWN INDICATION
  11. POTASSIUM [Concomitant]
     Indication: DRUG USE FOR UNKNOWN INDICATION
  12. GARLIC [Concomitant]
     Indication: DRUG USE FOR UNKNOWN INDICATION
  13. GINKO BILOBA [Concomitant]
     Indication: DRUG USE FOR UNKNOWN INDICATION

REACTIONS (2)
  - FLUSHING [None]
  - PAIN IN EXTREMITY [None]
